FAERS Safety Report 5972050-5 (Version None)
Quarter: 2008Q4

REPORT INFORMATION
  Report Type: 
  Country: None (occurrence: None)
  Receive Date: 20081201
  Receipt Date: 20080227
  Transmission Date: 20090506
  Serious: No
  Sender: FDA-Public Use
  Company Number: US-TEVA-168258USA

PATIENT
  Sex: Female
  Weight: 95.34 kg

DRUGS (2)
  1. SALBUTAMOL SULFATE INHALATION, 0.09 MG [Suspect]
     Indication: ASTHMA
     Dosage: 1-2 INHALATIONS Q 4-6 HOURS
     Route: 055
  2. FLUTICASONE PROPIONATE [Concomitant]
     Dosage: 2 PUFFS AM, 2 PUFFS PM
     Route: 055

REACTIONS (1)
  - DRUG INEFFECTIVE [None]
